FAERS Safety Report 8187757-1 (Version None)
Quarter: 2012Q1

REPORT INFORMATION
  Report Type: 
  Country: None (occurrence: None)
  Receive Date: 20120306
  Receipt Date: 20120229
  Transmission Date: 20120608
  Serious: Yes (Life-Threatening)
  Sender: FDA-Public Use
  Company Number: PL-ROCHE-1044870

PATIENT
  Sex: Female
  Weight: 68 kg

DRUGS (6)
  1. CALCIUM CARBONATE [Concomitant]
     Dosage: 2 U
     Dates: start: 20060524
  2. FUROSEMIDE [Concomitant]
     Dates: start: 20060524
  3. SIMVASTATIN [Concomitant]
     Dates: start: 20090815
  4. ACETYLSALICYLIC ACID SRT [Concomitant]
     Dates: start: 20090615
  5. MIRCERA [Suspect]
     Indication: NEPHROGENIC ANAEMIA
     Route: 058
     Dates: start: 20110812, end: 20111213
  6. OMEPRAZOLE [Concomitant]
     Dates: start: 20070716

REACTIONS (1)
  - IDIOPATHIC PULMONARY FIBROSIS [None]
